FAERS Safety Report 4417867-3 (Version None)
Quarter: 2004Q2

REPORT INFORMATION
  Report Type: 
  Country: None (occurrence: None)
  Receive Date: 20040621
  Receipt Date: 20040409
  Transmission Date: 20050107
  Serious: Yes (Other)
  Sender: FDA-Public Use
  Company Number: PHEH2004US04075

PATIENT
  Age: 68 Year
  Sex: Male

DRUGS (9)
  1. ZOMETA [Suspect]
     Dosage: 4 MG OVER 15 MINUTES
     Dates: start: 20021024, end: 20030819
  2. CYCLOPHOSPHAMIDE [Concomitant]
  3. EPOETIN ALFA [Concomitant]
  4. MELPHALAN [Concomitant]
  5. PREDNISONE [Concomitant]
  6. RITUXIMAB [Concomitant]
  7. DEXAMETHASONE [Concomitant]
  8. FILGRASTIM [Concomitant]
  9. ONDANSETRON [Concomitant]

REACTIONS (2)
  - OSTEONECROSIS [None]
  - SEQUESTRECTOMY [None]
